FAERS Safety Report 23217946 (Version 1)
Quarter: 2023Q4

REPORT INFORMATION
  Report Type: Report from Study
  Country: CA (occurrence: None)
  Receive Date: 20231122
  Receipt Date: 20231122
  Transmission Date: 20240110
  Serious: Yes (Hospitalization)
  Sender: FDA-Public Use
  Company Number: 2023A215718

PATIENT
  Sex: Male

DRUGS (1)
  1. FASENRA [Suspect]
     Active Substance: BENRALIZUMAB
     Indication: Asthma
     Route: 058
     Dates: start: 20180704

REACTIONS (5)
  - Fatigue [Unknown]
  - Hypertension [Recovering/Resolving]
  - Heart rate increased [Recovering/Resolving]
  - COVID-19 [Recovered/Resolved]
  - Diabetes mellitus [Unknown]
